FAERS Safety Report 18500687 (Version 1)
Quarter: 2020Q4

REPORT INFORMATION
  Report Type: Spontaneous
  Country: US (occurrence: US)
  Receive Date: 20201112
  Receipt Date: 20201112
  Transmission Date: 20210114
  Serious: Yes (Hospitalization)
  Sender: FDA-Public Use
  Company Number: None

PATIENT
  Age: 79 Year
  Sex: Male

DRUGS (19)
  1. ASPRIN [Concomitant]
     Active Substance: ASPIRIN
  2. ULORIC [Concomitant]
     Active Substance: FEBUXOSTAT
  3. INLYTA [Suspect]
     Active Substance: AXITINIB
     Indication: RENAL CANCER
     Route: 048
     Dates: start: 20200506
  4. FLUDROCORT [Concomitant]
  5. CORTEF [Concomitant]
     Active Substance: HYDROCORTISONE
  6. FINASTERIDE. [Concomitant]
     Active Substance: FINASTERIDE
  7. LANSOPRAZOLE CAP [Concomitant]
  8. TESTOTERONE GEL [Concomitant]
  9. ZANTAC [Concomitant]
     Active Substance: RANITIDINE HYDROCHLORIDE
  10. AMLODIPINE [Concomitant]
     Active Substance: AMLODIPINE BESYLATE
  11. FOLIC ACID. [Concomitant]
     Active Substance: FOLIC ACID
  12. VITAMIN B12 [Concomitant]
     Active Substance: CYANOCOBALAMIN
  13. ZETIA [Concomitant]
     Active Substance: EZETIMIBE
  14. LEVOTHYROXIN TAB [Concomitant]
  15. MYRBETRIQ [Concomitant]
     Active Substance: MIRABEGRON
  16. OMEGA 3-6-9 CAP [Concomitant]
  17. VITAMIN D3 [Concomitant]
     Active Substance: CHOLECALCIFEROL
  18. VOTRIENT [Concomitant]
     Active Substance: PAZOPANIB HYDROCHLORIDE
  19. REQUIP XL [Concomitant]
     Active Substance: ROPINIROLE HYDROCHLORIDE

REACTIONS (1)
  - Blood pressure increased [None]

NARRATIVE: CASE EVENT DATE: 20201106
